FAERS Safety Report 7683951-4 (Version None)
Quarter: 2011Q3

REPORT INFORMATION
  Report Type: 
  Country: None (occurrence: None)
  Receive Date: 20110815
  Receipt Date: 20110810
  Transmission Date: 20111222
  Serious: Yes (Death)
  Sender: FDA-Public Use
  Company Number: IT-PFIZER INC-2008036691

PATIENT
  Age: 72 Year
  Sex: Male

DRUGS (13)
  1. TERAZOSIN HCL [Concomitant]
  2. SUTENT [Suspect]
     Indication: RENAL CELL CARCINOMA
     Dosage: 50 MG, 1X/DAY
     Route: 048
     Dates: start: 20071030, end: 20080404
  3. TRAMADOL HCL [Concomitant]
     Route: 048
  4. RABEPRAZOLE SODIUM [Concomitant]
  5. METOPROLOL [Concomitant]
  6. NORVASC [Concomitant]
  7. METOPROLOL TARTRATE [Concomitant]
  8. ENALAPRIL MALEATE [Concomitant]
  9. ASPIRIN [Concomitant]
  10. AVODART [Concomitant]
  11. DEXAMETHASONE SODIUM PHOSPHATE [Concomitant]
     Route: 048
  12. SIMVASTATIN [Concomitant]
  13. ESOMEPRAZOLE MAGNESIUM [Concomitant]

REACTIONS (3)
  - DIARRHOEA [None]
  - SEPTIC SHOCK [None]
  - ANAL ABSCESS [None]
